FAERS Safety Report 5825110-3 (Version None)
Quarter: 2008Q3

REPORT INFORMATION
  Report Type: 
  Country: None (occurrence: None)
  Receive Date: 20080725
  Receipt Date: 20080725
  Transmission Date: 20090109
  Serious: Yes (Other)
  Sender: FDA-Public Use
  Company Number: None

PATIENT
  Age: 42 Year
  Sex: Female
  Weight: 103.8737 kg

DRUGS (1)
  1. ZOLPIDEM [Suspect]
     Indication: INSOMNIA
     Dosage: ONE DAILY ORAL
     Route: 048
     Dates: start: 20060101, end: 20070101

REACTIONS (3)
  - FEELING ABNORMAL [None]
  - INSOMNIA [None]
  - MANIA [None]
